FAERS Safety Report 5710189-X (Version None)
Quarter: 2008Q2

REPORT INFORMATION
  Report Type: 
  Country: None (occurrence: None)
  Receive Date: 20080418
  Receipt Date: 20080407
  Transmission Date: 20081010
  Serious: Yes (Hospitalization, Other)
  Sender: FDA-Public Use
  Company Number: GB-PFIZER INC-2007097608

PATIENT
  Sex: Female
  Weight: 72 kg

DRUGS (5)
  1. SUTENT [Suspect]
     Indication: BREAST CANCER METASTATIC
     Route: 048
     Dates: start: 20071116, end: 20071118
  2. DOCETAXEL [Suspect]
     Indication: BREAST CANCER METASTATIC
     Dosage: DAILY DOSE:140MG-FREQ:EVERY 3 WEEKS
     Route: 042
     Dates: start: 20071115, end: 20071118
  3. DEXAMETHASONE TAB [Concomitant]
     Route: 048
     Dates: start: 20071114, end: 20071116
  4. DOMPERIDONE [Concomitant]
     Route: 048
  5. ONDANSETRON [Concomitant]
     Route: 048

REACTIONS (2)
  - NEUTROPENIC SEPSIS [None]
  - VOMITING [None]
